FAERS Safety Report 24562049 (Version 1)
Quarter: 2024Q4

REPORT INFORMATION
  Report Type: Report from Study
  Country: US (occurrence: US)
  Receive Date: 20241029
  Receipt Date: 20241029
  Transmission Date: 20250114
  Serious: No
  Sender: DECIPHERA PHARMACEUTICALS
  Company Number: US-DECIPHERA PHARMACEUTICALS LLC-2024US000907

PATIENT
  Age: 73 Year
  Sex: Male
  Weight: 46.9 kg

DRUGS (1)
  1. QINLOCK [Suspect]
     Active Substance: RIPRETINIB
     Indication: Gastrointestinal stromal tumour
     Dosage: 150 MILLIGRAM, QD
     Route: 048
     Dates: start: 20221202

REACTIONS (1)
  - Pain [Unknown]
